FAERS Safety Report 15748075 (Version 1)
Quarter: 2018Q4

REPORT INFORMATION
  Report Type: Spontaneous
  Country: GB (occurrence: GB)
  Receive Date: 20181221
  Receipt Date: 20181221
  Transmission Date: 20190205
  Serious: Yes (Death, Hospitalization)
  Sender: FDA-Public Use
  Company Number: GB-TEVA-216485ISR

PATIENT
  Age: 64 Year
  Sex: Male

DRUGS (4)
  1. OXALIPLATIN. [Suspect]
     Active Substance: OXALIPLATIN
     Indication: COLORECTAL CANCER
     Route: 065
     Dates: start: 200907, end: 200907
  2. OXALIPLATIN. [Suspect]
     Active Substance: OXALIPLATIN
     Route: 065
     Dates: start: 200908, end: 200908
  3. XELODA [Suspect]
     Active Substance: CAPECITABINE
     Indication: COLORECTAL CANCER
     Route: 065
     Dates: start: 200907, end: 200907
  4. XELODA [Suspect]
     Active Substance: CAPECITABINE
     Route: 065
     Dates: start: 200908, end: 200908

REACTIONS (2)
  - Malaise [Fatal]
  - Death [Fatal]

NARRATIVE: CASE EVENT DATE: 20090901
